FAERS Safety Report 13305966 (Version 3)
Quarter: 2017Q2

REPORT INFORMATION
  Report Type: Spontaneous
  Country: US (occurrence: US)
  Receive Date: 20170308
  Receipt Date: 20170403
  Transmission Date: 20170830
  Serious: Yes (Other)
  Sender: FDA-Public Use
  Company Number: US-HORIZON-RAV-0067-2017

PATIENT
  Age: 31 Year
  Sex: Male
  Weight: 162 kg

DRUGS (4)
  1. CYCLINEX [Concomitant]
  2. RAVICTI [Suspect]
     Active Substance: GLYCEROL PHENYLBUTYRATE
     Indication: ORNITHINE TRANSCARBAMOYLASE DEFICIENCY
     Dosage: 5.8 ML TID, INCREASED TO 6 ML TID
  3. MULTIVITAMIN WITH IRON [Concomitant]
     Active Substance: IRON\VITAMINS
     Dosage: DAILY
  4. PRO-PHREE [Concomitant]

REACTIONS (4)
  - Anxiety [Unknown]
  - Ammonia increased [Recovering/Resolving]
  - Viral upper respiratory tract infection [Unknown]
  - Nausea [Unknown]

NARRATIVE: CASE EVENT DATE: 201703
